FAERS Safety Report 10056919 (Version 2)
Quarter: 2014Q2

REPORT INFORMATION
  Report Type: Spontaneous
  Country: US (occurrence: US)
  Receive Date: 20140403
  Receipt Date: 20140513
  Transmission Date: 20141212
  Serious: Yes (Other)
  Sender: FDA-Public Use
  Company Number: US-PFIZER INC-2014094291

PATIENT
  Age: 84 Year
  Sex: Female

DRUGS (9)
  1. XELJANZ [Suspect]
     Indication: RHEUMATOID ARTHRITIS
     Dosage: 5 MG, 2X/DAY
     Route: 048
     Dates: start: 20130918, end: 2013
  2. DIPHENOXYLATE W/ATROPINE SULFATE [Concomitant]
     Dosage: UNK
  3. FENTANYL [Concomitant]
     Dosage: 25 UG, UNK
  4. GABAPENTIN [Concomitant]
     Dosage: 100 MG, UNK
  5. HYDROCODONE W/ACETAMINOPHEN [Concomitant]
     Dosage: (HYDROCODONE BITARTRATE 10, PARACETAMOL 325)
  6. LOSARTAN [Concomitant]
     Dosage: 50 MG, UNK
  7. METOCLOPRAMIDE [Concomitant]
     Dosage: 10 MG, UNK
  8. METOPROLOL [Concomitant]
     Dosage: 100 MG, UNK
  9. SIMVASTATIN [Concomitant]
     Dosage: 10 MG, UNK

REACTIONS (1)
  - Diverticulitis [Recovered/Resolved]
